FAERS Safety Report 18701543 (Version 1)
Quarter: 2021Q1

REPORT INFORMATION
  Report Type: Report from Study
  Country: US (occurrence: US)
  Receive Date: 20210105
  Receipt Date: 20210105
  Transmission Date: 20210419
  Serious: Yes (Death, Other)
  Sender: FDA-Public Use
  Company Number: US-TAKEDA-2020TUS061118

PATIENT
  Age: 74 Year
  Sex: Female

DRUGS (1)
  1. PENTASA [Suspect]
     Active Substance: MESALAMINE
     Indication: PRODUCT USED FOR UNKNOWN INDICATION
     Dosage: 500 MILLIGRAM, 3 TABLETS QD
     Route: 048
     Dates: start: 20191212, end: 20201117

REACTIONS (1)
  - Death [Fatal]

NARRATIVE: CASE EVENT DATE: 20201117
